FAERS Safety Report 8683374 (Version 3)
Quarter: 2013Q1

REPORT INFORMATION
  Report Type: Spontaneous
  Country: US (occurrence: None)
  Receive Date: 20120710
  Receipt Date: 20120926
  Transmission Date: 20140127
  Serious: Yes (Other)
  Sender: FDA-Public Use
  Company Number: ADR-2012-01231

PATIENT
  Sex: Male

DRUGS (2)
  1. LIORESAL [Suspect]
     Indication: CEREBROVASCULAR ACCIDENT
  2. LIORESAL [Suspect]
     Indication: MUSCLE SPASTICITY

REACTIONS (8)
  - Pain in extremity [None]
  - Abasia [None]
  - Insomnia [None]
  - Constipation [None]
  - Depression [None]
  - Diplegia [None]
  - Headache [None]
  - Muscular weakness [None]
